FAERS Safety Report 17502634 (Version 3)
Quarter: 2020Q2

REPORT INFORMATION
  Report Type: Spontaneous
  Country: US (occurrence: US)
  Receive Date: 20200305
  Receipt Date: 20200610
  Transmission Date: 20200713
  Serious: Yes (Hospitalization, Other)
  Sender: FDA-Public Use
  Company Number: US-PFIZER INC-2020098202

PATIENT
  Age: 69 Year
  Sex: Female
  Weight: 70.31 kg

DRUGS (5)
  1. PRAZOSIN HCL [Suspect]
     Active Substance: PRAZOSIN HYDROCHLORIDE
     Dosage: 6 MG, DAILY
     Route: 048
  2. PRAZOSIN HCL [Suspect]
     Active Substance: PRAZOSIN HYDROCHLORIDE
     Dosage: UNK
  3. LABETALOL HYDROCHLORIDE. [Suspect]
     Active Substance: LABETALOL HYDROCHLORIDE
     Indication: BLOOD PRESSURE ABNORMAL
     Dosage: 200 MG, 3X/DAY
     Route: 048
     Dates: start: 201712
  4. PRAZOSIN HCL [Suspect]
     Active Substance: PRAZOSIN HYDROCHLORIDE
     Indication: BLOOD PRESSURE ABNORMAL
     Dosage: 1 MG, 4X/DAY
     Route: 048
     Dates: start: 201812
  5. PROAIR [FLUTICASONE PROPIONATE] [Concomitant]
     Active Substance: FLUTICASONE PROPIONATE
     Indication: ASTHMA
     Dosage: UNK, AS NEEDED (TAKE TWO PUFFS EVERY 4-6 HOURS AS NEEDED)

REACTIONS (11)
  - Cerebrovascular accident [Unknown]
  - Drug ineffective [Not Recovered/Not Resolved]
  - Cerebrovascular accident [Recovered/Resolved with Sequelae]
  - Hypoaesthesia [Not Recovered/Not Resolved]
  - Ear disorder [Unknown]
  - Reaction to colouring [Unknown]
  - Hemiplegia [Not Recovered/Not Resolved]
  - Respiratory disorder [Unknown]
  - Intentional product use issue [Unknown]
  - Sinus disorder [Unknown]
  - Paraesthesia [Not Recovered/Not Resolved]

NARRATIVE: CASE EVENT DATE: 20170704
